FAERS Safety Report 16637066 (Version 2)
Quarter: 2019Q3

REPORT INFORMATION
  Report Type: Spontaneous
  Country: US (occurrence: US)
  Receive Date: 20190726
  Receipt Date: 20190827
  Transmission Date: 20191004
  Serious: No
  Sender: FDA-Public Use
  Company Number: US-BAYER-2019-137720

PATIENT
  Age: 66 Year
  Sex: Female
  Weight: 81 kg

DRUGS (2)
  1. MIRALAX [Suspect]
     Active Substance: POLYETHYLENE GLYCOL 3350
     Indication: GASTROINTESTINAL DISORDER
     Dosage: 17 G, BID
     Route: 048
  2. CHOLESTEROL MANAGER (PHYTOSTEROLS NOS) [Suspect]
     Active Substance: PHYTOSTEROLS

REACTIONS (2)
  - Extra dose administered [Unknown]
  - Product use issue [Unknown]
